FAERS Safety Report 6391419-0 (Version None)
Quarter: 2009Q4

REPORT INFORMATION
  Report Type: 
  Country: None (occurrence: None)
  Receive Date: 20091007
  Receipt Date: 20091001
  Transmission Date: 20100525
  Serious: Yes (Hospitalization)
  Sender: FDA-Public Use
  Company Number: JP-BAYER-200913689BYL

PATIENT
  Age: 69 Year
  Sex: Male
  Weight: 76 kg

DRUGS (17)
  1. NEXAVAR [Suspect]
     Indication: HEPATIC NEOPLASM MALIGNANT
     Dosage: TOTAL DAILY DOSE: 800 MG  UNIT DOSE: 200 MG
     Route: 048
     Dates: start: 20090810, end: 20090819
  2. NEXAVAR [Suspect]
     Dosage: UNIT DOSE: 200 MG
     Route: 048
     Dates: start: 20090914
  3. DAI-KENCHU-TO [Concomitant]
     Route: 048
     Dates: start: 20090803
  4. INCHIN-KO-TO [Concomitant]
     Route: 048
     Dates: start: 20090803
  5. PARIET [Concomitant]
     Route: 048
     Dates: start: 20090803
  6. URSO 250 [Concomitant]
     Route: 048
     Dates: start: 20090803
  7. MUCOSTA [Concomitant]
     Route: 048
     Dates: start: 20090803
  8. SUCRALFATE [Concomitant]
     Dosage: UNIT DOSE: 10 %
     Route: 048
     Dates: start: 20090803
  9. LACTULOSE [Concomitant]
     Dosage: UNIT DOSE: 60 %
     Route: 048
     Dates: start: 20090803
  10. AMINOLEBAN EN [Concomitant]
     Route: 048
     Dates: start: 20090803
  11. LIVACT [Concomitant]
     Route: 048
     Dates: start: 20090803
  12. LASIX [Concomitant]
     Route: 048
     Dates: start: 20090803
  13. ALDACTONE [Concomitant]
     Route: 048
     Dates: start: 20090803
  14. NABOAL [Concomitant]
     Route: 062
     Dates: start: 20090803
  15. DEPAS [Concomitant]
     Route: 048
     Dates: start: 20090808
  16. CATLEP [Concomitant]
     Route: 062
     Dates: start: 20090808
  17. UREPEARL [Concomitant]
     Route: 061
     Dates: start: 20090813

REACTIONS (2)
  - HEPATIC ENCEPHALOPATHY [None]
  - PALMAR-PLANTAR ERYTHRODYSAESTHESIA SYNDROME [None]
